FAERS Safety Report 11234444 (Version 3)
Quarter: 2015Q3

REPORT INFORMATION
  Report Type: Spontaneous
  Country: US (occurrence: US)
  Receive Date: 20150702
  Receipt Date: 20150813
  Transmission Date: 20151125
  Serious: No
  Sender: FDA-Public Use
  Company Number: US-009507513-1506USA014157

PATIENT
  Sex: Female

DRUGS (1)
  1. IMPLANON [Suspect]
     Active Substance: ETONOGESTREL
     Route: 059

REACTIONS (2)
  - Unintended pregnancy [Recovered/Resolved]
  - Pregnancy with implant contraceptive [Recovered/Resolved]
